FAERS Safety Report 23106609 (Version 1)
Quarter: 2023Q4

REPORT INFORMATION
  Report Type: Spontaneous
  Country: US (occurrence: US)
  Receive Date: 20231026
  Receipt Date: 20231026
  Transmission Date: 20240109
  Serious: Yes (Hospitalization)
  Sender: FDA-Public Use
  Company Number: US-BEH-2023164600

PATIENT
  Sex: Female

DRUGS (1)
  1. HIZENTRA [Suspect]
     Active Substance: HUMAN IMMUNOGLOBULIN G
     Indication: Hypogammaglobulinaemia
     Dosage: 6 GRAM, QW
     Route: 058
     Dates: start: 201810

REACTIONS (4)
  - Gastrointestinal surgery [Unknown]
  - Infection [Unknown]
  - Abscess [Unknown]
  - Pancreatitis [Unknown]
